FAERS Safety Report 6833437-1 (Version None)
Quarter: 2010Q3

REPORT INFORMATION
  Report Type: 
  Country: None (occurrence: None)
  Receive Date: 20100712
  Receipt Date: 20070322
  Transmission Date: 20110219
  Serious: No
  Sender: FDA-Public Use
  Company Number: US-PFIZER INC-2007025073

PATIENT
  Sex: Female

DRUGS (8)
  1. CHANTIX [Suspect]
     Indication: SMOKING CESSATION THERAPY
     Dates: start: 20070316, end: 20070320
  2. CYMBALTA [Concomitant]
     Indication: DEPRESSION
  3. SOMA [Concomitant]
  4. LORTAB [Concomitant]
  5. XANAX [Concomitant]
  6. ACETYLSALICYLIC ACID [Concomitant]
  7. OTHER RESPIRATORY SYSTEM PRODUCTS [Concomitant]
     Indication: CHRONIC OBSTRUCTIVE PULMONARY DISEASE
  8. OXYGEN [Concomitant]
     Indication: CHRONIC OBSTRUCTIVE PULMONARY DISEASE

REACTIONS (4)
  - CHEST PAIN [None]
  - COUGH [None]
  - MALAISE [None]
  - PLEURITIC PAIN [None]
